FAERS Safety Report 25726138 (Version 1)
Quarter: 2025Q3

REPORT INFORMATION
  Report Type: Spontaneous
  Country: US (occurrence: None)
  Receive Date: 20250824
  Receipt Date: 20250824
  Transmission Date: 20251021
  Serious: Yes (Other)
  Sender: FDA-CTU
  Company Number: None

PATIENT
  Age: 43 Year
  Sex: Female

DRUGS (3)
  1. GABAPENTIN [Suspect]
     Active Substance: GABAPENTIN
     Indication: Neuralgia
     Dosage: 1 CAPSULE AT BEDTIME ORAL
     Route: 048
  2. TRAMADOL [Concomitant]
     Active Substance: TRAMADOL
  3. AMITRIPTYLINE [Suspect]
     Active Substance: AMITRIPTYLINE

REACTIONS (7)
  - Coma [None]
  - Hypothermia [None]
  - Weight decreased [None]
  - Cognitive disorder [None]
  - Intentional product use issue [None]
  - Delusion [None]
  - Flat affect [None]
